FAERS Safety Report 15612408 (Version 1)
Quarter: 2018Q4

REPORT INFORMATION
  Report Type: Spontaneous
  Country: GB (occurrence: GB)
  Receive Date: 20181113
  Receipt Date: 20181113
  Transmission Date: 20190205
  Serious: Yes (Other)
  Sender: FDA-Public Use
  Company Number: GB-ASTRAZENECA-2018SF46960

PATIENT
  Sex: Female

DRUGS (1)
  1. DAPAGLIFLOZIN. [Suspect]
     Active Substance: DAPAGLIFLOZIN
     Dosage: 10
     Route: 048
     Dates: start: 20180311, end: 20180311

REACTIONS (1)
  - Diabetic ketoacidosis [Unknown]

NARRATIVE: CASE EVENT DATE: 20180311
